FAERS Safety Report 24399941 (Version 1)
Quarter: 2024Q4

REPORT INFORMATION
  Report Type: Report from Study
  Country: DE (occurrence: DE)
  Receive Date: 20241005
  Receipt Date: 20241005
  Transmission Date: 20250115
  Serious: No
  Sender: ROCHE
  Company Number: DE-ML39632-2312557-0

PATIENT
  Age: 50 Year
  Sex: Female
  Weight: 80 kg

DRUGS (18)
  1. OCREVUS [Suspect]
     Active Substance: OCRELIZUMAB
     Indication: Multiple sclerosis
     Route: 042
     Dates: start: 20200225, end: 20200310
  2. OCREVUS [Suspect]
     Active Substance: OCRELIZUMAB
     Route: 042
     Dates: start: 20200915, end: 20220630
  3. OFATUMUMAB [Suspect]
     Active Substance: OFATUMUMAB
     Indication: Multiple sclerosis
     Route: 065
     Dates: start: 20230119
  4. Comirnaty [Concomitant]
     Route: 030
     Dates: start: 20210311, end: 20210311
  5. Comirnaty [Concomitant]
     Route: 030
     Dates: start: 20210422, end: 20210422
  6. Comirnaty [Concomitant]
     Route: 030
     Dates: start: 20211116, end: 20211116
  7. LYRICA [Concomitant]
     Active Substance: PREGABALIN
     Route: 048
     Dates: end: 202004
  8. PNEUMOVAX 23 [Concomitant]
     Active Substance: PNEUMOCOCCAL VACCINE, POLYVALENT 23
     Route: 030
     Dates: start: 20200210, end: 20200210
  9. CARBAMAZEPINE [Concomitant]
     Active Substance: CARBAMAZEPINE
     Indication: Neuralgia
     Dosage: DEFINITION OF THE INTERVAL: AS REQUIRED
     Route: 048
     Dates: start: 20210812, end: 20210824
  10. CARBAMAZEPINE [Concomitant]
     Active Substance: CARBAMAZEPINE
     Route: 048
     Dates: start: 20210904, end: 20210904
  11. SHINGRIX [Concomitant]
     Active Substance: RECOMBINANT VARICELLA ZOSTER VIRUS (VZV) GLYCOPROTEIN E
     Indication: Herpes zoster
     Route: 030
     Dates: end: 20200129
  12. KYLEENA [Concomitant]
     Active Substance: LEVONORGESTREL
     Route: 015
     Dates: start: 20180503
  13. AMOXICILLIN\CLAVULANATE POTASSIUM [Concomitant]
     Active Substance: AMOXICILLIN\CLAVULANATE POTASSIUM
     Route: 042
     Dates: start: 20210907, end: 20210907
  14. CHOLECALCIFEROL [Concomitant]
     Active Substance: CHOLECALCIFEROL
     Indication: Vitamin D deficiency
     Route: 048
     Dates: start: 201911
  15. TRAMADOL [Concomitant]
     Active Substance: TRAMADOL
     Dosage: DEFINITION OF THE INTERVAL: AS REQUIRED
     Route: 048
     Dates: start: 202108, end: 20210903
  16. Interferon beta 1a i.m. [Concomitant]
     Dates: start: 201107, end: 201412
  17. Dimethylfumarat [Concomitant]
     Dates: start: 201412
  18. GLATIRAMER ACETATE [Concomitant]
     Active Substance: GLATIRAMER ACETATE
     Dates: start: 200704, end: 201107

REACTIONS (1)
  - COVID-19 [Recovered/Resolved]

NARRATIVE: CASE EVENT DATE: 20240701
